FAERS Safety Report 7125340-7 (Version None)
Quarter: 2010Q4

REPORT INFORMATION
  Report Type: 
  Country: None (occurrence: None)
  Receive Date: 20101129
  Receipt Date: 20101119
  Transmission Date: 20110411
  Serious: Yes (Other)
  Sender: FDA-Public Use
  Company Number: US-GENZYME-CERZ-1001636

PATIENT

DRUGS (2)
  1. CEREZYME [Suspect]
     Indication: GAUCHER'S DISEASE
     Dosage: 56 U/KG, Q2W
     Route: 042
     Dates: start: 20101023
  2. IMITREX [Concomitant]
     Indication: MIGRAINE
     Dosage: UNK

REACTIONS (5)
  - CHEST PAIN [None]
  - DYSPNOEA [None]
  - PAIN IN EXTREMITY [None]
  - PALPITATIONS [None]
  - RASH ERYTHEMATOUS [None]
